FAERS Safety Report 9340851 (Version 1)
Quarter: 2013Q2

REPORT INFORMATION
  Report Type: Spontaneous
  Country: US (occurrence: US)
  Receive Date: 20130610
  Receipt Date: 20130610
  Transmission Date: 20140414
  Serious: No
  Sender: FDA-Public Use
  Company Number: US-009507513-1306USA002126

PATIENT
  Age: 3 Year
  Sex: Female
  Weight: 11.79 kg

DRUGS (2)
  1. CLARITIN CHEWABLE TABLETS [Suspect]
     Indication: SEASONAL ALLERGY
     Dosage: 5 MG, QD
     Route: 048
     Dates: start: 201305
  2. CLARITIN CHEWABLE TABLETS [Suspect]
     Dosage: 5 MG, BID
     Route: 048
     Dates: start: 20130530

REACTIONS (1)
  - Overdose [Unknown]
